FAERS Safety Report 8053603-X (Version None)
Quarter: 2012Q1

REPORT INFORMATION
  Report Type: 
  Country: None (occurrence: None)
  Receive Date: 20120118
  Receipt Date: 20120112
  Transmission Date: 20120608
  Serious: Yes (Hospitalization, Other)
  Sender: FDA-Public Use
  Company Number: US-MERCK-1109USA01508

PATIENT
  Age: 79 Year
  Sex: Female

DRUGS (10)
  1. FOLIC ACID [Concomitant]
     Route: 065
     Dates: start: 19900101
  2. CALCIUM (UNSPECIFIED) [Concomitant]
     Route: 065
     Dates: start: 19900101
  3. SIMVASTATIN [Concomitant]
     Indication: BLOOD CHOLESTEROL
     Route: 065
     Dates: start: 19930101
  4. VITAMINS (UNSPECIFIED) [Concomitant]
     Route: 065
     Dates: start: 19900101
  5. DIOVAN [Concomitant]
     Indication: BLOOD PRESSURE
     Route: 065
     Dates: start: 19950101
  6. MAXZIDE [Concomitant]
     Indication: DIURETIC THERAPY
     Route: 065
     Dates: start: 20000101
  7. FOSAMAX [Suspect]
     Route: 048
     Dates: start: 20080301, end: 20090101
  8. OMEPRAZOLE [Concomitant]
     Indication: DYSPEPSIA
     Route: 065
     Dates: start: 20050101
  9. FOSAMAX [Suspect]
     Indication: OSTEOPENIA
     Route: 048
     Dates: start: 20060301, end: 20080301
  10. OMEGA-3 MARINE TRIGLYCERIDES [Concomitant]
     Route: 065
     Dates: start: 19900101

REACTIONS (10)
  - OSTEOARTHRITIS [None]
  - FEMUR FRACTURE [None]
  - JOINT INJURY [None]
  - INFLAMMATION [None]
  - HUMERUS FRACTURE [None]
  - TRIGGER FINGER [None]
  - LOW TURNOVER OSTEOPATHY [None]
  - STITCH ABSCESS [None]
  - FALL [None]
  - VARICOSE VEIN [None]
